FAERS Safety Report 7799252-X (Version None)
Quarter: 2011Q4

REPORT INFORMATION
  Report Type: 
  Country: None (occurrence: None)
  Receive Date: 20111006
  Receipt Date: 20101013
  Transmission Date: 20120403
  Serious: No
  Sender: FDA-Public Use
  Company Number: US-GLAXOSMITHKLINE-A0886419A

PATIENT
  Age: 27 Year
  Sex: Female

DRUGS (3)
  1. SPIRONOLACTONE [Concomitant]
  2. MAXCLARITY FOAM ADVANCED ACNE TREATMENT [Suspect]
     Indication: ACNE
     Dosage: 1APP PER DAY
     Route: 061
     Dates: start: 20100908, end: 20100922
  3. DUAC [Suspect]
     Indication: ACNE
     Dosage: 1APP PER DAY
     Route: 061
     Dates: start: 20100713, end: 20100720

REACTIONS (4)
  - PRURITUS [None]
  - DRY SKIN [None]
  - APPLICATION SITE REACTION [None]
  - ERYTHEMA [None]
